FAERS Safety Report 21156098 (Version 1)
Quarter: 2022Q3

REPORT INFORMATION
  Report Type: Spontaneous
  Country: US (occurrence: None)
  Receive Date: 20220730
  Receipt Date: 20220730
  Transmission Date: 20221027
  Serious: Yes (Life-Threatening, Other)
  Sender: FDA-Public Use
  Company Number: None

PATIENT
  Age: 28 Year
  Weight: 67.5 kg

DRUGS (1)
  1. CITROMA MAGNESIUM CITRATE [Suspect]
     Active Substance: MAGNESIUM CITRATE
     Indication: Constipation
     Dosage: OTHER QUANTITY : 1 OUNCE(S);?OTHER FREQUENCY : OCCASIONALLY;?
     Route: 048
     Dates: start: 20220428, end: 20220428

REACTIONS (3)
  - Haematochezia [None]
  - Haemorrhoids [None]
  - Recalled product administered [None]

NARRATIVE: CASE EVENT DATE: 20220428
